FAERS Safety Report 4984879-0 (Version None)
Quarter: 2006Q2

REPORT INFORMATION
  Report Type: 
  Country: None (occurrence: None)
  Receive Date: 20060426
  Receipt Date: 20060426
  Transmission Date: 20061013
  Serious: Yes (Life-Threatening, Hospitalization)
  Sender: FDA-Public Use
  Company Number: None

PATIENT
  Age: 49 Year
  Sex: Female
  Weight: 120 kg

DRUGS (42)
  1. SUCCINYLCHLOLINE CHLORIDE INJ [Suspect]
     Indication: ANAESTHESIA
     Dates: start: 20050613, end: 20050613
  2. SUCCINYLCHLOLINE CHLORIDE INJ [Suspect]
     Indication: CORONARY ARTERY SURGERY
     Dates: start: 20050613, end: 20050613
  3. ALBUTEROL [Concomitant]
  4. AMINOCAPROIC ACID [Concomitant]
  5. CALCIUM CHLORIDE [Concomitant]
  6. CEFUROXIME [Concomitant]
  7. EPINEPHRINE [Concomitant]
  8. HEPARIN [Concomitant]
  9. POTASSIUM CHLORIDE [Concomitant]
  10. LEVOFLOXACIN [Concomitant]
  11. REGULAR INSULIN [Concomitant]
  12. LIDOCAINE [Concomitant]
  13. MAGNESIUM SULFATE [Concomitant]
  14. PAPAVERINE [Concomitant]
  15. PROTAMINE SULFATE [Concomitant]
  16. VASOPRESSIN [Concomitant]
  17. CEFAZOLIN [Concomitant]
  18. CARDIOPLEGIC SOLUTION -CPD [Concomitant]
  19. THAM [Concomitant]
  20. D5LR [Concomitant]
  21. HIGH AND LOW POTASSIUM CHLORIDE CONCENTRATIONS- [Concomitant]
  22. MANNITOL [Concomitant]
  23. NITROGLYCERIN [Concomitant]
  24. PROPOFOL [Concomitant]
  25. NIMBEX [Concomitant]
  26. EPHEDRINE [Concomitant]
  27. ESMOLOL HCL [Concomitant]
  28. ETOMIDATE [Concomitant]
  29. VECURONIUM BROMIDE [Concomitant]
  30. MIDAZOLAM [Concomitant]
  31. FENTANYL [Concomitant]
  32. ASPIRIN [Concomitant]
  33. PANTOPRAZOLE [Concomitant]
  34. DOCUSATE SODIUM [Concomitant]
  35. LEVOTHYROXINE SODIUM [Concomitant]
  36. PREDNISONE [Concomitant]
  37. PRAVASTATIN [Concomitant]
  38. SEVELAMAR [Concomitant]
  39. ESCITALOPRAM OXALATE [Concomitant]
  40. CEFEPIME [Concomitant]
  41. FLUCONAZOLE [Concomitant]
  42. ERYTHROPOETIN [Concomitant]

REACTIONS (6)
  - HYPERTHERMIA [None]
  - HYPOTENSION [None]
  - POST PROCEDURAL COMPLICATION [None]
  - POSTOPERATIVE FEVER [None]
  - RENAL FAILURE ACUTE [None]
  - RHABDOMYOLYSIS [None]
